FAERS Safety Report 18412777 (Version 7)
Quarter: 2022Q2

REPORT INFORMATION
  Report Type: Spontaneous
  Country: CA (occurrence: CA)
  Receive Date: 20201021
  Receipt Date: 20220525
  Transmission Date: 20220721
  Serious: Yes (Other)
  Sender: FDA-Public Use
  Company Number: CA-BAUSCH-BL-2020-030171

PATIENT
  Age: 19 Year
  Sex: Female

DRUGS (84)
  1. BUPROPION [Suspect]
     Active Substance: BUPROPION
     Indication: Complex regional pain syndrome
     Route: 065
  2. VENLAFAXINE HYDROCHLORIDE [Suspect]
     Active Substance: VENLAFAXINE HYDROCHLORIDE
     Indication: Complex regional pain syndrome
     Route: 065
  3. CAPSICUM ANNUUM [Suspect]
     Active Substance: CAPSICUM
     Indication: Complex regional pain syndrome
     Route: 065
  4. VENLAFAXINE [Suspect]
     Active Substance: VENLAFAXINE HYDROCHLORIDE
     Indication: Complex regional pain syndrome
     Route: 065
  5. DICLOFENAC [Suspect]
     Active Substance: DICLOFENAC
     Indication: Complex regional pain syndrome
     Route: 047
  6. CAPSAICIN [Suspect]
     Active Substance: CAPSAICIN
     Indication: Complex regional pain syndrome
     Route: 065
  7. TRAMADOL [Suspect]
     Active Substance: TRAMADOL
     Indication: Complex regional pain syndrome
     Route: 065
  8. TRAMADOL HYDROCHLORIDE [Suspect]
     Active Substance: TRAMADOL HYDROCHLORIDE
     Indication: Complex regional pain syndrome
     Route: 065
  9. DICLOFENAC [Suspect]
     Active Substance: DICLOFENAC
     Indication: Complex regional pain syndrome
     Route: 065
  10. GABAPENTIN [Suspect]
     Active Substance: GABAPENTIN
     Indication: Complex regional pain syndrome
     Route: 065
  11. PREGABALIN [Suspect]
     Active Substance: PREGABALIN
     Indication: Complex regional pain syndrome
     Route: 065
  12. PREGABALIN [Suspect]
     Active Substance: PREGABALIN
     Route: 065
  13. PREGABALIN [Suspect]
     Active Substance: PREGABALIN
     Route: 065
  14. PREGABALIN [Suspect]
     Active Substance: PREGABALIN
     Route: 065
  15. PREGABALIN [Suspect]
     Active Substance: PREGABALIN
     Route: 065
  16. AMITRIPTYLINE [Suspect]
     Active Substance: AMITRIPTYLINE
     Indication: Complex regional pain syndrome
     Route: 065
  17. AMITRIPTYLINE [Suspect]
     Active Substance: AMITRIPTYLINE
     Dosage: AT NIGHT
     Route: 065
  18. AMITRIPTYLINE [Suspect]
     Active Substance: AMITRIPTYLINE
     Route: 065
  19. AMITRIPTYLINE [Suspect]
     Active Substance: AMITRIPTYLINE
     Dosage: AT BEDTIME
     Route: 065
  20. AMITRIPTYLINE [Suspect]
     Active Substance: AMITRIPTYLINE
     Route: 065
  21. DESIPRAMINE [Suspect]
     Active Substance: DESIPRAMINE
     Indication: Complex regional pain syndrome
     Route: 065
  22. CITALOPRAM HYDROBROMIDE [Suspect]
     Active Substance: CITALOPRAM HYDROBROMIDE
     Indication: Complex regional pain syndrome
     Route: 065
  23. DULOXETINE [Suspect]
     Active Substance: DULOXETINE
     Indication: Complex regional pain syndrome
     Route: 065
  24. NORTRIPTYLINE HYDROCHLORIDE [Suspect]
     Active Substance: NORTRIPTYLINE HYDROCHLORIDE
     Indication: Complex regional pain syndrome
     Route: 065
  25. LIDOCAINE [Suspect]
     Active Substance: LIDOCAINE
     Indication: Complex regional pain syndrome
     Dosage: PHENOL ABLATIONS OF LIDOCAINE
     Route: 065
  26. LIDOCAINE [Suspect]
     Active Substance: LIDOCAINE
     Route: 065
  27. LIDOCAINE [Suspect]
     Active Substance: LIDOCAINE
     Route: 065
  28. LIDOCAINE [Suspect]
     Active Substance: LIDOCAINE
     Route: 065
  29. LIDOCAINE [Suspect]
     Active Substance: LIDOCAINE
     Route: 061
  30. LIDOCAINE [Suspect]
     Active Substance: LIDOCAINE
     Route: 062
  31. LIDOCAINE [Suspect]
     Active Substance: LIDOCAINE
     Route: 042
  32. KETAMINE [Suspect]
     Active Substance: KETAMINE
     Indication: Complex regional pain syndrome
     Route: 042
  33. KETAMINE [Suspect]
     Active Substance: KETAMINE
     Route: 048
  34. KETAMINE [Suspect]
     Active Substance: KETAMINE
     Route: 048
  35. ACETAMINOPHEN [Suspect]
     Active Substance: ACETAMINOPHEN
     Indication: Complex regional pain syndrome
     Route: 065
  36. CARBAMAZEPINE [Suspect]
     Active Substance: CARBAMAZEPINE
     Indication: Complex regional pain syndrome
     Route: 065
  37. OXCARBAZEPINE [Suspect]
     Active Substance: OXCARBAZEPINE
     Indication: Complex regional pain syndrome
     Route: 065
  38. TOPIRAMATE [Suspect]
     Active Substance: TOPIRAMATE
     Indication: Complex regional pain syndrome
     Route: 065
  39. CLONIDINE [Suspect]
     Active Substance: CLONIDINE
     Indication: Complex regional pain syndrome
     Route: 065
  40. MEXILETINE [Suspect]
     Active Substance: MEXILETINE
     Indication: Complex regional pain syndrome
     Route: 065
  41. MEMANTINE [Suspect]
     Active Substance: MEMANTINE
     Indication: Complex regional pain syndrome
     Route: 065
  42. DEXTROMETHORPHAN [Suspect]
     Active Substance: DEXTROMETHORPHAN
     Indication: Complex regional pain syndrome
     Route: 065
  43. CELECOXIB [Suspect]
     Active Substance: CELECOXIB
     Indication: Complex regional pain syndrome
     Route: 065
  44. IBUPROFEN [Suspect]
     Active Substance: IBUPROFEN
     Indication: Complex regional pain syndrome
     Route: 065
  45. NAPROXEN [Suspect]
     Active Substance: NAPROXEN
     Indication: Complex regional pain syndrome
     Route: 065
  46. KETOROLAC [Suspect]
     Active Substance: KETOROLAC TROMETHAMINE
     Indication: Complex regional pain syndrome
     Route: 065
  47. CODEINE [Suspect]
     Active Substance: CODEINE
     Indication: Complex regional pain syndrome
     Dosage: IN THERAPEUTIC DOSES
     Route: 065
  48. MORPHINE [Suspect]
     Active Substance: MORPHINE
     Indication: Complex regional pain syndrome
     Dosage: IN THERAPEUTIC DOSES
     Route: 065
  49. OXYCODONE [Suspect]
     Active Substance: OXYCODONE
     Indication: Complex regional pain syndrome
     Dosage: IN THERAPEUTIC DOSES
     Route: 065
  50. OXYCODONE [Suspect]
     Active Substance: OXYCODONE
     Route: 065
  51. OXYCODONE [Suspect]
     Active Substance: OXYCODONE
     Route: 065
  52. OXYCODONE [Suspect]
     Active Substance: OXYCODONE
     Route: 065
  53. OXYCODONE [Suspect]
     Active Substance: OXYCODONE
     Dosage: 50 MG EVERY 4 HOURS AS NEEDED (THIS WAS USED INFREQUENTLY)
     Route: 065
  54. OXYCODONE [Suspect]
     Active Substance: OXYCODONE
     Route: 065
  55. OXYCODONE [Suspect]
     Active Substance: OXYCODONE
     Dosage: 50 MG AS NEEDED, BUT NOT DAILY
     Route: 065
  56. OXYCODONE [Suspect]
     Active Substance: OXYCODONE
     Route: 065
  57. HYDROMORPHONE [Suspect]
     Active Substance: HYDROMORPHONE
     Indication: Complex regional pain syndrome
     Dosage: IN THERAPEUTIC DOSES
     Route: 065
  58. EMLA [Suspect]
     Active Substance: LIDOCAINE\PRILOCAINE
     Indication: Complex regional pain syndrome
     Route: 065
  59. FENTANYL [Suspect]
     Active Substance: FENTANYL
     Indication: Complex regional pain syndrome
     Route: 062
  60. FENTANYL [Suspect]
     Active Substance: FENTANYL
     Dosage: 25 UG/HOUR EVERY 3 DAYS
     Route: 062
  61. FENTANYL [Suspect]
     Active Substance: FENTANYL
     Dosage: 100 MICROGRAMS / HOUR EVERY 3 DAYS
     Route: 062
  62. FENTANYL [Suspect]
     Active Substance: FENTANYL
     Dosage: 12 UG/HOUR EVERY 3 DAYS WITH CONTINUED SLOW GRADUAL WITHDRAWAL
     Route: 062
  63. METHADONE HYDROCHLORIDE [Suspect]
     Active Substance: METHADONE HYDROCHLORIDE
     Indication: Complex regional pain syndrome
     Route: 065
  64. ASPIRIN [Suspect]
     Active Substance: ASPIRIN
     Indication: Complex regional pain syndrome
     Route: 065
  65. NORTRIPTYLINE [Suspect]
     Active Substance: NORTRIPTYLINE
     Indication: Complex regional pain syndrome
     Route: 065
  66. NORTRIPTYLINE [Suspect]
     Active Substance: NORTRIPTYLINE
     Route: 065
  67. LAVENDER OIL [Suspect]
     Active Substance: LAVENDER OIL
     Indication: Complex regional pain syndrome
     Route: 065
  68. EUCALYPTUS OIL [Suspect]
     Active Substance: EUCALYPTUS OIL
     Indication: Complex regional pain syndrome
     Dosage: DROPS INHALATION
     Route: 065
  69. BERGAMOT OIL [Suspect]
     Active Substance: BERGAMOT OIL
     Indication: Complex regional pain syndrome
     Route: 065
  70. HERBALS [Suspect]
     Active Substance: HERBALS
     Indication: Complex regional pain syndrome
     Route: 065
  71. ROSEMARY OIL [Suspect]
     Active Substance: ROSEMARY OIL
     Indication: Complex regional pain syndrome
     Route: 055
  72. ASPIRIN [Suspect]
     Active Substance: ASPIRIN
     Indication: Complex regional pain syndrome
     Route: 065
  73. HERBALS [Suspect]
     Active Substance: HERBALS
     Indication: Complex regional pain syndrome
     Dosage: GLOBULES ORAL
     Route: 048
  74. LIDOCAINE\PRILOCAINE [Suspect]
     Active Substance: LIDOCAINE\PRILOCAINE
     Indication: Product used for unknown indication
     Route: 065
  75. LIDOCAINE\PRILOCAINE HYDROCHLORIDE [Suspect]
     Active Substance: LIDOCAINE\PRILOCAINE HYDROCHLORIDE
     Indication: Complex regional pain syndrome
     Route: 065
  76. TRAMADOL [Suspect]
     Active Substance: TRAMADOL
     Indication: Complex regional pain syndrome
     Route: 065
  77. DICLOFENAC SODIUM [Suspect]
     Active Substance: DICLOFENAC SODIUM
     Indication: Complex regional pain syndrome
     Route: 065
  78. CAPSICUM\HERBALS [Suspect]
     Active Substance: CAPSICUM\HERBALS
     Indication: Product used for unknown indication
     Route: 065
  79. CAPSICUM OLEORESIN [Suspect]
     Active Substance: CAPSICUM OLEORESIN
     Indication: Product used for unknown indication
     Route: 065
  80. DULOXETINE [Suspect]
     Active Substance: DULOXETINE
     Indication: Complex regional pain syndrome
     Route: 065
  81. MEMANTINE HYDROCHLORIDE [Suspect]
     Active Substance: MEMANTINE HYDROCHLORIDE
     Indication: Complex regional pain syndrome
     Route: 065
  82. CITALOPRAM [Suspect]
     Active Substance: CITALOPRAM HYDROBROMIDE
     Indication: Complex regional pain syndrome
     Route: 065
  83. DEXTROMETHORPHAN HYDROBROMIDE [Suspect]
     Active Substance: DEXTROMETHORPHAN HYDROBROMIDE
     Indication: Complex regional pain syndrome
     Route: 065
  84. METHADOSE SUGAR-FREE [Suspect]
     Active Substance: METHADONE HYDROCHLORIDE
     Indication: Complex regional pain syndrome
     Route: 065

REACTIONS (4)
  - Immune thrombocytopenia [Unknown]
  - Weight increased [Unknown]
  - Withdrawal syndrome [Unknown]
  - Therapy non-responder [Unknown]
